FAERS Safety Report 8129781-0 (Version None)
Quarter: 2012Q1

REPORT INFORMATION
  Report Type: 
  Country: None (occurrence: None)
  Receive Date: 20120210
  Receipt Date: 20120210
  Transmission Date: 20120608
  Serious: Yes (Life-Threatening)
  Sender: FDA-Public Use
  Company Number: None

PATIENT
  Age: 62 Year
  Sex: Female
  Weight: 68.038 kg

DRUGS (1)
  1. AMOXICILLIN AND CLAVULANATE POTASSIUM [Suspect]
     Indication: SINUSITIS
     Dosage: ONE TABLET
     Route: 048
     Dates: start: 20120206, end: 20120206

REACTIONS (10)
  - DIARRHOEA [None]
  - THROAT TIGHTNESS [None]
  - PRURITUS [None]
  - LIP SWELLING [None]
  - PRODUCT QUALITY ISSUE [None]
  - NAUSEA [None]
  - MOVEMENT DISORDER [None]
  - LOSS OF CONSCIOUSNESS [None]
  - SWELLING [None]
  - VOMITING [None]
